FAERS Safety Report 6423092-7 (Version None)
Quarter: 2009Q4

REPORT INFORMATION
  Report Type: 
  Country: None (occurrence: None)
  Receive Date: 20091028
  Receipt Date: 20091021
  Transmission Date: 20100525
  Serious: Yes (Other)
  Sender: FDA-Public Use
  Company Number: 2009SP031892

PATIENT
  Age: 59 Year
  Sex: Female

DRUGS (1)
  1. TEMODAR [Suspect]
     Indication: DRUG USE FOR UNKNOWN INDICATION
     Dosage: 140 MG; QD; PO, 280 MG; QD; PO
     Route: 048

REACTIONS (4)
  - ANAPHYLACTIC SHOCK [None]
  - BODY TEMPERATURE INCREASED [None]
  - DIARRHOEA [None]
  - SENSORY LOSS [None]
